FAERS Safety Report 10010212 (Version 1)
Quarter: 2014Q1

REPORT INFORMATION
  Report Type: Spontaneous
  Country: US (occurrence: US)
  Receive Date: 20140312
  Receipt Date: 20140312
  Transmission Date: 20141002
  Serious: No
  Sender: FDA-Public Use
  Company Number: US-INCYTE CORPORATION-2013IN001685

PATIENT
  Sex: Male

DRUGS (4)
  1. JAKAFI [Suspect]
     Dosage: 10 MG, BID
     Route: 048
     Dates: start: 20130130
  2. VICODIN 5-500 [Concomitant]
  3. AMOXICILLIN [Concomitant]
     Dosage: 500 MG, UNK
  4. ERYTHROMYCIN [Concomitant]
     Dosage: 2%

REACTIONS (2)
  - Oropharyngeal pain [Recovering/Resolving]
  - Cough [Recovering/Resolving]
